FAERS Safety Report 8303326-4 (Version None)
Quarter: 2012Q2

REPORT INFORMATION
  Report Type: 
  Country: None (occurrence: None)
  Receive Date: 20120423
  Receipt Date: 20120417
  Transmission Date: 20120825
  Serious: No
  Sender: FDA-Public Use
  Company Number: US-BIOGENIDEC-2012BI013456

PATIENT
  Sex: Female

DRUGS (2)
  1. TYSABRI [Suspect]
     Indication: MULTIPLE SCLEROSIS
     Route: 042
     Dates: start: 20101117
  2. MEDICATION (NOS) [Concomitant]
     Indication: AUTOIMMUNE THYROIDITIS

REACTIONS (6)
  - BIOPSY STOMACH [None]
  - GOITRE [None]
  - EXOSTOSIS [None]
  - HYPOAESTHESIA [None]
  - FEELING JITTERY [None]
  - RASH [None]
